FAERS Safety Report 8033467-0 (Version None)
Quarter: 2012Q1

REPORT INFORMATION
  Report Type: 
  Country: None (occurrence: None)
  Receive Date: 20120110
  Receipt Date: 20120106
  Transmission Date: 20120608
  Serious: Yes (Other)
  Sender: FDA-Public Use
  Company Number: US-BAYER-2011-101786

PATIENT
  Age: 23 Year
  Sex: Female

DRUGS (1)
  1. MIRENA [Suspect]
     Indication: CONTRACEPTION
     Dosage: 20 MCG/24HR, CONT
     Route: 015
     Dates: start: 20101222, end: 20111101

REACTIONS (9)
  - STARING [None]
  - LOSS OF CONSCIOUSNESS [None]
  - TONGUE BITING [None]
  - TREMOR [None]
  - EYE MOVEMENT DISORDER [None]
  - ENURESIS [None]
  - BRADYPHRENIA [None]
  - POSTICTAL STATE [None]
  - COMPLEX PARTIAL SEIZURES [None]
